FAERS Safety Report 16921581 (Version 2)
Quarter: 2019Q4

REPORT INFORMATION
  Report Type: Spontaneous
  Country: US (occurrence: US)
  Receive Date: 20191015
  Receipt Date: 20191022
  Transmission Date: 20200122
  Serious: No
  Sender: FDA-Public Use
  Company Number: US-ELI_LILLY_AND_COMPANY-US201910002476

PATIENT
  Age: 62 Year
  Sex: Female

DRUGS (2)
  1. EMGALITY [Suspect]
     Active Substance: GALCANEZUMAB-GNLM
     Indication: MIGRAINE
     Dosage: 240 MG, LOADING DOSE
     Route: 058
     Dates: start: 20190922, end: 20190922
  2. MEMANTINE. [Concomitant]
     Active Substance: MEMANTINE
     Indication: MIGRAINE

REACTIONS (1)
  - Injection site hypersensitivity [Recovering/Resolving]

NARRATIVE: CASE EVENT DATE: 20190922
